FAERS Safety Report 17659183 (Version 2)
Quarter: 2025Q2

REPORT INFORMATION
  Report Type: Report from Study
  Country: SE (occurrence: SE)
  Receive Date: 20200413
  Receipt Date: 20250620
  Transmission Date: 20250717
  Serious: Yes (Life-Threatening, Hospitalization, Other)
  Sender: AUROBINDO
  Company Number: SE-DESITIN-2020-00514

PATIENT
  Age: 81 Year
  Sex: Male

DRUGS (3)
  1. AMLODIPINE [Suspect]
     Active Substance: AMLODIPINE BESYLATE
     Indication: Product used for unknown indication
     Route: 048
  2. DIAZEPAM [Suspect]
     Active Substance: DIAZEPAM
     Indication: Product used for unknown indication
     Route: 065
  3. INSULIN NOS [Suspect]
     Active Substance: INSULIN NOS
     Indication: Cardiac dysfunction
     Route: 065

REACTIONS (2)
  - Myocardial depression [Unknown]
  - Haemodynamic instability [Unknown]
